FAERS Safety Report 9682585 (Version 7)
Quarter: 2014Q1

REPORT INFORMATION
  Report Type: Spontaneous
  Country: JP (occurrence: JP)
  Receive Date: 20131112
  Receipt Date: 20140325
  Transmission Date: 20141002
  Serious: Yes (Hospitalization)
  Sender: FDA-Public Use
  Company Number: JP-UCBSA-102492

PATIENT
  Age: 68 Year
  Sex: Male

DRUGS (15)
  1. E KEPPRA [Suspect]
     Indication: EPILEPSY
     Dosage: 500 MG
     Route: 048
     Dates: start: 20130917, end: 20131022
  2. ADALAT-CR [Concomitant]
     Dosage: 20 MG
     Route: 048
  3. OLMETEC [Concomitant]
     Dosage: 20 MG
     Route: 048
  4. WARFARIN POTASSIUM [Concomitant]
     Dosage: 2 MG
     Route: 048
  5. WARFARIN POTASSIUM [Concomitant]
     Dosage: 0.5 MG
     Route: 048
  6. CRESTOR [Concomitant]
     Route: 048
     Dates: start: 20131107
  7. CRESTOR [Concomitant]
     Dosage: 5 MG
     Route: 048
  8. NEXIUM [Concomitant]
     Dosage: 10 MG
     Route: 048
  9. NESINA [Concomitant]
     Route: 048
  10. PREDNISOLONE [Concomitant]
     Dosage: 40 MG
     Route: 048
     Dates: start: 20131105, end: 20131106
  11. PREDNISOLONE [Concomitant]
     Dosage: 20 MG
     Route: 048
     Dates: start: 20131107, end: 20131111
  12. PREDNISOLONE [Concomitant]
     Dosage: 10 MG
     Route: 048
     Dates: start: 20131112, end: 20131114
  13. PREDNISOLONE [Concomitant]
     Dosage: 5 MG
     Route: 048
     Dates: start: 20131115, end: 20131117
  14. PREDNISOLONE [Concomitant]
     Dosage: 15 MG
  15. PREDNISOLONE [Concomitant]
     Dosage: 60 MG, AS 1500 ML

REACTIONS (4)
  - Drug reaction with eosinophilia and systemic symptoms [Recovered/Resolved]
  - Hepatic function abnormal [Recovered/Resolved]
  - Renal impairment [Recovered/Resolved]
  - Dehydration [Recovered/Resolved]
